FAERS Safety Report 7501144-8 (Version None)
Quarter: 2011Q2

REPORT INFORMATION
  Report Type: 
  Country: None (occurrence: None)
  Receive Date: 20110524
  Receipt Date: 20100527
  Transmission Date: 20111010
  Serious: No
  Sender: FDA-Public Use
  Company Number: US-NOVEN-ALL1-2010-03129

PATIENT

DRUGS (6)
  1. DAYTRANA [Suspect]
     Dosage: 30 MG, 1X/DAY:QD
     Route: 062
     Dates: start: 20090101
  2. LAMICTAL [Concomitant]
  3. DAYTRANA [Suspect]
     Dosage: 30 MG, 1X/DAY:QD
     Route: 062
     Dates: start: 20100401
  4. LAMICTAL [Concomitant]
     Dosage: 100 MG, 1X/DAY:QD
     Route: 048
     Dates: start: 20100501
  5. BUSPAR [Concomitant]
     Dosage: 10 MG, 3X/DAY:TID
     Route: 048
     Dates: start: 20100401
  6. UNKNOWN MEDICATIONS [Concomitant]
     Dosage: UNK, UNKNOWN
     Route: 065

REACTIONS (4)
  - OFF LABEL USE [None]
  - PRODUCT QUALITY ISSUE [None]
  - WRONG TECHNIQUE IN DRUG USAGE PROCESS [None]
  - SLEEP DISORDER [None]
